FAERS Safety Report 9368800 (Version 3)
Quarter: 2013Q4

REPORT INFORMATION
  Report Type: Spontaneous
  Country: GB (occurrence: GB)
  Receive Date: 20130626
  Receipt Date: 20131028
  Transmission Date: 20140711
  Serious: Yes (Other)
  Sender: FDA-Public Use
  Company Number: GB-RANBAXY-2013R1-70357

PATIENT
  Age: 41 Year
  Sex: Male

DRUGS (4)
  1. FLUOXETINE [Suspect]
     Indication: DEPRESSION
     Dosage: 60 MG, QD
     Route: 048
  2. CLOZARIL [Suspect]
     Indication: SCHIZOPHRENIA
     Dosage: UNK
     Route: 048
     Dates: start: 20020529
  3. CLOZARIL [Suspect]
     Indication: PRODUCT USED FOR UNKNOWN INDICATION
     Dosage: 200 MG, QD
     Route: 048
     Dates: end: 20130514
  4. DIAZEPAM [Concomitant]
     Indication: INSOMNIA
     Dosage: UNK
     Route: 048
     Dates: start: 20130526

REACTIONS (11)
  - Anxiety [Recovering/Resolving]
  - Balance disorder [Not Recovered/Not Resolved]
  - Basilar migraine [Not Recovered/Not Resolved]
  - Depression [Recovering/Resolving]
  - Dizziness [Recovering/Resolving]
  - Migraine [Not Recovered/Not Resolved]
  - Neutropenia [Recovered/Resolved]
  - Neutrophil count decreased [Recovered/Resolved]
  - Obsessive thoughts [Recovering/Resolving]
  - Psychotic disorder [Recovering/Resolving]
  - White blood cell count decreased [Recovered/Resolved]
